FAERS Safety Report 25854925 (Version 1)
Quarter: 2025Q3

REPORT INFORMATION
  Report Type: Spontaneous
  Country: US (occurrence: US)
  Receive Date: 20250927
  Receipt Date: 20250927
  Transmission Date: 20251020
  Serious: No
  Sender: SANOFI AVENTIS
  Company Number: US-SA-2025SA287130

PATIENT
  Age: 65 Year
  Sex: Female

DRUGS (11)
  1. DUPIXENT [Suspect]
     Active Substance: DUPILUMAB
     Indication: Eosinophilic oesophagitis
     Dosage: 300 MG, QW
     Route: 058
     Dates: start: 20241108
  2. ALBUTEROL [Concomitant]
     Active Substance: ALBUTEROL
  3. BIOTIN [Concomitant]
     Active Substance: BIOTIN
  4. CALCIUM CITRATE [Concomitant]
     Active Substance: CALCIUM CITRATE
  5. FISH OIL [Concomitant]
     Active Substance: FISH OIL
  6. FLONASE [Concomitant]
     Active Substance: FLUTICASONE PROPIONATE
  7. FLUTICASONE [Concomitant]
     Active Substance: FLUTICASONE
  8. IPRATROPIUM [Concomitant]
     Active Substance: IPRATROPIUM
  9. MELATONIN [Concomitant]
     Active Substance: MELATONIN
  10. OMEPRAZOLE [Concomitant]
     Active Substance: OMEPRAZOLE
  11. SERTRALINE [Concomitant]
     Active Substance: SERTRALINE HYDROCHLORIDE

REACTIONS (1)
  - Drug ineffective [Unknown]
